FAERS Safety Report 13567313 (Version 2)
Quarter: 2017Q2

REPORT INFORMATION
  Report Type: Report from Study
  Country: US (occurrence: US)
  Receive Date: 20170522
  Receipt Date: 20170603
  Transmission Date: 20170830
  Serious: No
  Sender: FDA-Public Use
  Company Number: US-AMGEN-USASL2017075839

PATIENT
  Age: 64 Year
  Sex: Female

DRUGS (1)
  1. ENBREL [Suspect]
     Active Substance: ETANERCEPT
     Indication: PSORIATIC ARTHROPATHY
     Dosage: UNK
     Route: 065

REACTIONS (8)
  - Abdominal pain [Unknown]
  - Injection site bruising [Unknown]
  - Pain in extremity [Unknown]
  - Pruritus [Unknown]
  - Injection site erythema [Unknown]
  - Influenza [Unknown]
  - Blood glucose decreased [Unknown]
  - Upper respiratory tract infection [Unknown]
